FAERS Safety Report 25433046 (Version 1)
Quarter: 2025Q2

REPORT INFORMATION
  Report Type: Spontaneous
  Country: CA (occurrence: CA)
  Receive Date: 20250613
  Receipt Date: 20250613
  Transmission Date: 20250717
  Serious: Yes (Other)
  Sender: Haleon PLC
  Company Number: CA-HALEON-2246458

PATIENT
  Age: 5 Year
  Sex: Male

DRUGS (1)
  1. ADVIL [Suspect]
     Active Substance: IBUPROFEN
     Indication: Drug provocation test

REACTIONS (2)
  - Anaphylactic reaction [Unknown]
  - Off label use [Unknown]
